FAERS Safety Report 9815332 (Version 2)
Quarter: 2014Q1

REPORT INFORMATION
  Report Type: Report from Study
  Country: JP (occurrence: JP)
  Receive Date: 20140114
  Receipt Date: 20140312
  Transmission Date: 20141002
  Serious: Yes (Hospitalization, Other)
  Sender: FDA-Public Use
  Company Number: JP-ROCHE-1330750

PATIENT
  Age: 71 Year
  Sex: Male
  Weight: 53 kg

DRUGS (28)
  1. METHOXY POLYETHYLENE GLYCOL-EPOETIN BETA [Suspect]
     Indication: NEPHROGENIC ANAEMIA
     Route: 058
     Dates: start: 20120718, end: 20120718
  2. METHOXY POLYETHYLENE GLYCOL-EPOETIN BETA [Suspect]
     Indication: NEPHROGENIC ANAEMIA
     Route: 058
     Dates: start: 20120815, end: 20121107
  3. METHOXY POLYETHYLENE GLYCOL-EPOETIN BETA [Suspect]
     Indication: NEPHROGENIC ANAEMIA
     Route: 058
     Dates: start: 20121205, end: 20121205
  4. METHOXY POLYETHYLENE GLYCOL-EPOETIN BETA [Suspect]
     Indication: NEPHROGENIC ANAEMIA
     Route: 058
     Dates: start: 20130116, end: 20130116
  5. METHOXY POLYETHYLENE GLYCOL-EPOETIN BETA [Suspect]
     Indication: NEPHROGENIC ANAEMIA
     Route: 058
     Dates: start: 20130213, end: 20130213
  6. METHOXY POLYETHYLENE GLYCOL-EPOETIN BETA [Suspect]
     Indication: NEPHROGENIC ANAEMIA
     Route: 058
     Dates: start: 20130305, end: 20130305
  7. METHOXY POLYETHYLENE GLYCOL-EPOETIN BETA [Suspect]
     Indication: NEPHROGENIC ANAEMIA
     Route: 058
     Dates: start: 20130402, end: 20130402
  8. METHOXY POLYETHYLENE GLYCOL-EPOETIN BETA [Suspect]
     Indication: NEPHROGENIC ANAEMIA
     Route: 058
     Dates: start: 20130507, end: 20130507
  9. METHOXY POLYETHYLENE GLYCOL-EPOETIN BETA [Suspect]
     Indication: NEPHROGENIC ANAEMIA
     Route: 042
     Dates: start: 20130604, end: 20130604
  10. METHOXY POLYETHYLENE GLYCOL-EPOETIN BETA [Suspect]
     Indication: NEPHROGENIC ANAEMIA
     Route: 058
     Dates: start: 20130702
  11. METHOXY POLYETHYLENE GLYCOL-EPOETIN BETA [Suspect]
     Route: 042
     Dates: start: 20130806
  12. CADUET [Concomitant]
     Route: 048
  13. CARDENALIN [Concomitant]
     Route: 048
     Dates: end: 20121205
  14. AMLODIN [Concomitant]
     Route: 048
     Dates: start: 20120201, end: 20121224
  15. AMLODIN [Concomitant]
     Route: 048
     Dates: start: 20121225, end: 20130115
  16. AMLODIN [Concomitant]
     Route: 048
     Dates: start: 20130116
  17. ALLELOCK [Concomitant]
     Route: 048
     Dates: start: 20120229
  18. LASIX [Concomitant]
     Indication: NEPHROSCLEROSIS
     Route: 048
     Dates: start: 20120620, end: 20120815
  19. OMEPRAL [Concomitant]
     Indication: PROPHYLAXIS
     Route: 048
     Dates: end: 20130507
  20. BAYASPIRIN [Concomitant]
     Indication: PROPHYLAXIS
     Route: 048
  21. FUROSEMIDE [Concomitant]
     Indication: NEPHROSCLEROSIS
     Route: 048
     Dates: start: 20120816
  22. ALFAROL [Concomitant]
     Route: 048
     Dates: end: 20121010
  23. HALCION [Concomitant]
     Route: 048
  24. PURSENNID [Concomitant]
     Route: 048
  25. ALLEGRA [Concomitant]
     Route: 048
     Dates: start: 20121225, end: 201301
  26. FESIN (JAPAN) [Concomitant]
     Indication: NEPHROSCLEROSIS
     Route: 042
     Dates: start: 20130514, end: 20130806
  27. OXAROL [Concomitant]
     Indication: NEPHROSCLEROSIS
     Route: 042
     Dates: start: 20130504
  28. GLUCOSE [Concomitant]
     Indication: NEPHROSCLEROSIS
     Dosage: FESIN NOTE 40MG2ML AND GLUCOSE NOTE 5%20ML ADMINISTERING (AT HD).
     Route: 065
     Dates: start: 20130514

REACTIONS (9)
  - Pleural effusion [Recovering/Resolving]
  - Pericardial effusion [Recovering/Resolving]
  - Inflammation [Recovering/Resolving]
  - Carcinoembryonic antigen increased [Recovering/Resolving]
  - Occult blood positive [Recovering/Resolving]
  - Sudden hearing loss [Not Recovered/Not Resolved]
  - Dizziness [Recovering/Resolving]
  - Urine abnormality [Recovering/Resolving]
  - White blood cells urine [Recovering/Resolving]
